FAERS Safety Report 8233688-8 (Version None)
Quarter: 2012Q1

REPORT INFORMATION
  Report Type: 
  Country: None (occurrence: None)
  Receive Date: 20120326
  Receipt Date: 20120320
  Transmission Date: 20120608
  Serious: Yes (Other)
  Sender: FDA-Public Use
  Company Number: PHHY2011KR111593

PATIENT
  Sex: Female

DRUGS (5)
  1. EXJADE [Suspect]
     Dosage: EVERY 2-3 DAYS
     Route: 048
  2. HORMONES [Concomitant]
  3. EXJADE [Suspect]
     Dosage: 750 MG, QOD
     Route: 048
     Dates: start: 20100201
  4. EXJADE [Suspect]
     Indication: IRON OVERLOAD
     Dosage: 1500 MG, PER DAY
     Route: 048
     Dates: start: 20100201
  5. CALCIUM CARBONATE [Concomitant]

REACTIONS (3)
  - ABDOMINAL DISCOMFORT [None]
  - HERPES ZOSTER [None]
  - NASOPHARYNGITIS [None]
